FAERS Safety Report 21226414 (Version 1)
Quarter: 2022Q3

REPORT INFORMATION
  Report Type: Spontaneous
  Country: US (occurrence: US)
  Receive Date: 20220818
  Receipt Date: 20220818
  Transmission Date: 20221027
  Serious: Yes (Life-Threatening, Hospitalization, Other)
  Sender: FDA-Public Use
  Company Number: US-drreddys-LIT/USA/22/0153378

PATIENT
  Age: 71 Year
  Sex: Female

DRUGS (10)
  1. DOXORUBICIN HYDROCHLORIDE [Suspect]
     Active Substance: DOXORUBICIN HYDROCHLORIDE
     Indication: Diffuse large B-cell lymphoma
  2. DOXORUBICIN HYDROCHLORIDE [Suspect]
     Active Substance: DOXORUBICIN HYDROCHLORIDE
     Indication: Prolymphocytic leukaemia
  3. CYCLOPHOSPHAMIDE [Suspect]
     Active Substance: CYCLOPHOSPHAMIDE
     Indication: Diffuse large B-cell lymphoma
     Dosage: SHE RECEIVED 6 CYCLES OF CHEMOTHERAPY
  4. CYCLOPHOSPHAMIDE [Suspect]
     Active Substance: CYCLOPHOSPHAMIDE
     Indication: Prolymphocytic leukaemia
  5. PREDNISONE [Suspect]
     Active Substance: PREDNISONE
     Indication: Diffuse large B-cell lymphoma
     Dosage: SHE RECEIVED 6 CYCLES OF CHEMOTHERAPY
  6. PREDNISONE [Suspect]
     Active Substance: PREDNISONE
     Indication: Prolymphocytic leukaemia
  7. RITUXIMAB [Suspect]
     Active Substance: RITUXIMAB
     Indication: Diffuse large B-cell lymphoma
     Dosage: SHE RECEIVED 6 CYCLES OF CHEMOTHERAPY
  8. RITUXIMAB [Suspect]
     Active Substance: RITUXIMAB
     Indication: Prolymphocytic leukaemia
  9. VINCRISTINE [Suspect]
     Active Substance: VINCRISTINE
     Indication: Diffuse large B-cell lymphoma
     Dosage: SHE RECEIVED 6 CYCLES OF CHEMOTHERAPY
  10. VINCRISTINE [Suspect]
     Active Substance: VINCRISTINE
     Indication: Prolymphocytic leukaemia

REACTIONS (4)
  - Drug ineffective [Unknown]
  - Disease progression [Unknown]
  - Metastases to meninges [Unknown]
  - Cauda equina syndrome [Unknown]
